FAERS Safety Report 16315283 (Version 1)
Quarter: 2019Q2

REPORT INFORMATION
  Report Type: Spontaneous
  Country: DE (occurrence: DE)
  Receive Date: 20190515
  Receipt Date: 20190515
  Transmission Date: 20190711
  Serious: Yes (Other)
  Sender: FDA-Public Use
  Company Number: DE-BAYER-2019-091587

PATIENT
  Sex: Female
  Weight: 45 kg

DRUGS (1)
  1. GADOVIST [Suspect]
     Active Substance: GADOBUTROL
     Indication: NUCLEAR MAGNETIC RESONANCE IMAGING
     Dosage: TOTAL NUMBER OF INJECTIONS 5
     Dates: start: 20150805, end: 20150924

REACTIONS (18)
  - Hypogammaglobulinaemia [None]
  - Gait inability [None]
  - Vision blurred [None]
  - General physical health deterioration [None]
  - Skin disorder [None]
  - Weight decreased [None]
  - Paralysis [None]
  - Pyrexia [None]
  - Arrhythmia [None]
  - Feeling abnormal [None]
  - Memory impairment [None]
  - Pruritus [None]
  - Vasculitis [None]
  - Dyspnoea [None]
  - Night sweats [None]
  - Pain [None]
  - Skin burning sensation [None]
  - Palmar erythema [None]
